FAERS Safety Report 8393481-2 (Version None)
Quarter: 2012Q2

REPORT INFORMATION
  Report Type: 
  Country: None (occurrence: None)
  Receive Date: 20120529
  Receipt Date: 20120516
  Transmission Date: 20120825
  Serious: Yes (Hospitalization)
  Sender: FDA-Public Use
  Company Number: JP-ELI_LILLY_AND_COMPANY-JP201205000014

PATIENT
  Sex: Female

DRUGS (3)
  1. AMARYL [Concomitant]
     Dosage: UNK
     Route: 048
     Dates: start: 19980227
  2. METFORMIN HCL [Concomitant]
     Dosage: UNK
     Route: 048
     Dates: start: 19980227
  3. BYETTA [Suspect]
     Indication: DIABETES MELLITUS
     Dosage: 5 UG, UNK

REACTIONS (2)
  - CHOLECYSTITIS ACUTE [None]
  - PANCREATITIS ACUTE [None]
